FAERS Safety Report 23176808 (Version 1)
Quarter: 2023Q4

REPORT INFORMATION
  Report Type: Spontaneous
  Country: US (occurrence: US)
  Receive Date: 20231113
  Receipt Date: 20231113
  Transmission Date: 20240110
  Serious: No
  Sender: FDA-Public Use
  Company Number: US-SANDOZ-SDZ2023US053117

PATIENT
  Sex: Female

DRUGS (1)
  1. ESTRADIOL [Suspect]
     Active Substance: ESTRADIOL
     Indication: Product used for unknown indication
     Dosage: 0.05MG/1D 4TTSM USNDC: 781713354, THREE WEEKSMEDICATIONS TAKEN DURING AE
     Route: 065

REACTIONS (7)
  - Product adhesion issue [Unknown]
  - Product quality issue [Unknown]
  - Hypersensitivity [Unknown]
  - Pruritus [Unknown]
  - Contusion [Unknown]
  - Mood altered [Unknown]
  - Hot flush [Unknown]
